FAERS Safety Report 6228317-9 (Version None)
Quarter: 2009Q2

REPORT INFORMATION
  Report Type: 
  Country: None (occurrence: None)
  Receive Date: 20090612
  Receipt Date: 20090602
  Transmission Date: 20091009
  Serious: Yes (Other)
  Sender: FDA-Public Use
  Company Number: US-AVENTIS-200913996US

PATIENT
  Sex: Female
  Weight: 144.7 kg

DRUGS (3)
  1. LANTUS [Suspect]
     Route: 058
     Dates: start: 20090311
  2. LANTUS [Suspect]
     Route: 058
     Dates: start: 20090509
  3. GLIMEPIRIDE [Concomitant]

REACTIONS (1)
  - EYE LASER SURGERY [None]
